FAERS Safety Report 7723034-8 (Version None)
Quarter: 2011Q3

REPORT INFORMATION
  Report Type: 
  Country: None (occurrence: None)
  Receive Date: 20110901
  Receipt Date: 20110822
  Transmission Date: 20111222
  Serious: Yes (Hospitalization, Other)
  Sender: FDA-Public Use
  Company Number: US-ELI_LILLY_AND_COMPANY-US201106004065

PATIENT
  Sex: Female

DRUGS (6)
  1. HUMALOG [Suspect]
     Indication: DIABETES MELLITUS
     Dosage: UNK UNK, PRN
     Dates: start: 20080101
  2. PREDNISONE [Concomitant]
  3. HUMALOG [Suspect]
     Dosage: UNK, PRN
     Dates: start: 20080101
  4. PLAQUENIL [Concomitant]
  5. HUMALOG [Suspect]
     Dosage: UNK UNK, PRN
     Dates: start: 20080101
  6. LANTUS [Concomitant]
     Dosage: UNK

REACTIONS (5)
  - ACCIDENTAL OVERDOSE [None]
  - FALL [None]
  - BLOOD GLUCOSE INCREASED [None]
  - HYPOGLYCAEMIC UNCONSCIOUSNESS [None]
  - GASTROENTERITIS SALMONELLA [None]
